FAERS Safety Report 5077458-0 (Version None)
Quarter: 2006Q3

REPORT INFORMATION
  Report Type: 
  Country: None (occurrence: None)
  Receive Date: 20060810
  Receipt Date: 20060306
  Transmission Date: 20061208
  Serious: Yes (Other)
  Sender: FDA-Public Use
  Company Number: US-GLAXOSMITHKLINE-A0596284A

PATIENT
  Age: 83 Year
  Sex: Female

DRUGS (4)
  1. PAROXETINE HCL [Suspect]
     Indication: DRUG USE FOR UNKNOWN INDICATION
     Dosage: 10MG PER DAY
     Route: 048
     Dates: start: 20040101, end: 20041101
  2. SYNTHROID [Concomitant]
  3. NORVASC [Concomitant]
  4. GLYBURIDE [Concomitant]

REACTIONS (6)
  - AGITATION [None]
  - AMNESIA [None]
  - DRUG INEFFECTIVE [None]
  - DYSARTHRIA [None]
  - HALLUCINATION [None]
  - MENTAL IMPAIRMENT [None]
